FAERS Safety Report 22237793 (Version 1)
Quarter: 2023Q2

REPORT INFORMATION
  Report Type: Report from Study
  Country: IT (occurrence: IT)
  Receive Date: 20230421
  Receipt Date: 20230421
  Transmission Date: 20230721
  Serious: Yes (Other)
  Sender: FDA-Public Use
  Company Number: IT-IGSA-BIG0023115

PATIENT
  Sex: Female

DRUGS (1)
  1. PROLASTIN [Suspect]
     Active Substance: .ALPHA.1-PROTEINASE INHIBITOR HUMAN
     Indication: Alpha-1 antitrypsin deficiency
     Dosage: UNK UNKNOWN, UNKNOWN
     Route: 042

REACTIONS (2)
  - Septic shock [Unknown]
  - Suspected transmission of an infectious agent via product [Unknown]
